FAERS Safety Report 6763025-7 (Version None)
Quarter: 2010Q2

REPORT INFORMATION
  Report Type: 
  Country: None (occurrence: None)
  Receive Date: 20100609
  Receipt Date: 20100528
  Transmission Date: 20101027
  Serious: Yes (Other)
  Sender: FDA-Public Use
  Company Number: JP-AMGEN-US410419

PATIENT
  Age: 50 Year
  Sex: Female

DRUGS (3)
  1. ENBREL [Suspect]
     Indication: RHEUMATOID ARTHRITIS
     Route: 058
     Dates: start: 20081117, end: 20100326
  2. LOXONIN [Concomitant]
     Dosage: UNKNOWN
     Route: 048
  3. RHEUMATREX [Concomitant]
     Dosage: UNKNOWN
     Route: 048

REACTIONS (2)
  - ECZEMA [None]
  - PURULENCE [None]
